FAERS Safety Report 5761368-7 (Version None)
Quarter: 2008Q2

REPORT INFORMATION
  Report Type: 
  Country: None (occurrence: None)
  Receive Date: 20080606
  Receipt Date: 20080605
  Transmission Date: 20081010
  Serious: Yes (Hospitalization)
  Sender: FDA-Public Use
  Company Number: DK-BRISTOL-MYERS SQUIBB COMPANY-14217053

PATIENT
  Age: 26 Year
  Sex: Male

DRUGS (4)
  1. TAXOL [Suspect]
     Indication: GERM CELL CANCER
     Dosage: STARTED ON 15MAY08
     Route: 042
     Dates: start: 20080521, end: 20080521
  2. BLEOMYCIN SULFATE [Suspect]
     Indication: GERM CELL CANCER
     Dosage: STARTED ON 15MAY08
     Route: 042
     Dates: start: 20080521, end: 20080521
  3. CISPLATIN [Suspect]
     Indication: GERM CELL CANCER
     Dosage: STARTED ON 15MAY08
     Route: 042
     Dates: start: 20080521, end: 20080521
  4. ETOPOSIDE [Suspect]
     Indication: GERM CELL CANCER
     Dosage: STARTED ON 15MAY08
     Route: 042
     Dates: start: 20080521, end: 20080521

REACTIONS (2)
  - FEBRILE NEUTROPENIA [None]
  - TONSILLITIS [None]
